FAERS Safety Report 6228345-3 (Version None)
Quarter: 2009Q2

REPORT INFORMATION
  Report Type: 
  Country: None (occurrence: None)
  Receive Date: 20090612
  Receipt Date: 20090608
  Transmission Date: 20091009
  Serious: Yes (Other)
  Sender: FDA-Public Use
  Company Number: FR-PFIZER INC-2009183983

PATIENT
  Age: 58 Year

DRUGS (1)
  1. CHAMPIX [Suspect]
     Dosage: UNKNOWN
     Dates: start: 20080825, end: 20081020

REACTIONS (1)
  - HEPATITIS [None]
